FAERS Safety Report 22053053 (Version 7)
Quarter: 2024Q3

REPORT INFORMATION
  Report Type: Spontaneous
  Country: US (occurrence: US)
  Receive Date: 20230302
  Receipt Date: 20240926
  Transmission Date: 20241017
  Serious: Yes (Death, Other)
  Sender: GLAXOSMITHKLINE
  Company Number: US-GLAXOSMITHKLINE-US2023AMR029797

PATIENT

DRUGS (1)
  1. ZEJULA [Suspect]
     Active Substance: NIRAPARIB
     Indication: Ovarian cancer
     Dosage: 200 MG, QD
     Dates: start: 20230208

REACTIONS (14)
  - Death [Fatal]
  - Constipation [Unknown]
  - Eructation [Unknown]
  - Nausea [Unknown]
  - Flatulence [Unknown]
  - Dizziness [Unknown]
  - Fall [Unknown]
  - Vomiting [Unknown]
  - Platelet count decreased [Unknown]
  - Haemoglobin decreased [Unknown]
  - Decreased appetite [Unknown]
  - Full blood count abnormal [Unknown]
  - Laboratory test abnormal [Unknown]
  - Drug ineffective [Unknown]
